FAERS Safety Report 23810688 (Version 1)
Quarter: 2024Q2

REPORT INFORMATION
  Report Type: Report from Study
  Country: CA (occurrence: CA)
  Receive Date: 20240502
  Receipt Date: 20240502
  Transmission Date: 20240716
  Serious: Yes (Other)
  Sender: FDA-Public Use
  Company Number: CA-TAKEDA-2024TUS039391

PATIENT
  Sex: Female

DRUGS (4)
  1. VEDOLIZUMAB [Suspect]
     Active Substance: VEDOLIZUMAB
     Indication: Colitis ulcerative
     Dosage: 300 MILLIGRAM
     Route: 042
     Dates: start: 20230620
  2. Cortiment [Concomitant]
     Dosage: UNK
     Dates: start: 2011
  3. Salofalk [Concomitant]
     Dosage: UNK
     Dates: start: 2023
  4. MESALAMINE [Concomitant]
     Active Substance: MESALAMINE
     Dosage: UNK
     Dates: start: 2011

REACTIONS (3)
  - Rectal haemorrhage [Unknown]
  - Faeces soft [Unknown]
  - Diarrhoea [Unknown]
